FAERS Safety Report 19274245 (Version 1)
Quarter: 2021Q2

REPORT INFORMATION
  Report Type: Spontaneous
  Country: US (occurrence: US)
  Receive Date: 20210519
  Receipt Date: 20210519
  Transmission Date: 20210717
  Serious: Yes (Death, Hospitalization)
  Sender: FDA-Public Use
  Company Number: None

PATIENT
  Age: 67 Year
  Sex: Male
  Weight: 171.9 kg

DRUGS (1)
  1. WARFARIN [Suspect]
     Active Substance: WARFARIN
     Indication: ATRIAL FIBRILLATION
     Dates: end: 20200121

REACTIONS (6)
  - Haematochezia [None]
  - Subarachnoid haemorrhage [None]
  - Brain herniation [None]
  - Packed red blood cell transfusion [None]
  - Transfusion [None]
  - Brain oedema [None]

NARRATIVE: CASE EVENT DATE: 20200121
